FAERS Safety Report 7072684-3 (Version None)
Quarter: 2010Q4

REPORT INFORMATION
  Report Type: 
  Country: None (occurrence: None)
  Receive Date: 20101028
  Receipt Date: 20101028
  Transmission Date: 20110411
  Serious: Yes (Other)
  Sender: FDA-Public Use
  Company Number: None

PATIENT
  Sex: Male
  Weight: 94.3482 kg

DRUGS (2)
  1. REGLAN [Suspect]
     Indication: GASTROOESOPHAGEAL REFLUX DISEASE
     Dosage: 10 MG 3-4 X DAY PO
     Route: 048
     Dates: start: 19930101, end: 19951231
  2. METOCLOPRAMINE 10 MG QUALITEST PHARMACEUTICAL [Suspect]
     Indication: GASTROOESOPHAGEAL REFLUX DISEASE
     Dosage: 10 MG  2 X DAY PO
     Route: 048
     Dates: start: 19960101, end: 20090401

REACTIONS (2)
  - ANXIETY [None]
  - TARDIVE DYSKINESIA [None]
